FAERS Safety Report 19355315 (Version 3)
Quarter: 2024Q1

REPORT INFORMATION
  Report Type: Spontaneous
  Country: GR (occurrence: GR)
  Receive Date: 20210602
  Receipt Date: 20240103
  Transmission Date: 20240410
  Serious: Yes (Hospitalization, Other)
  Sender: FDA-Public Use
  Company Number: GR-009507513-2105GRC006383

PATIENT
  Age: 63 Year
  Sex: Female

DRUGS (2)
  1. PEMBROLIZUMAB [Suspect]
     Active Substance: PEMBROLIZUMAB
     Indication: Melanoma recurrent
     Dosage: 200 MILLIGRAM FLAT DOSE EVERY THREE WEEKS
     Route: 042
     Dates: start: 2018
  2. IPILIMUMAB [Suspect]
     Active Substance: IPILIMUMAB
     Indication: Melanoma recurrent
     Dosage: 3 MILLIGRAM/KILOGRAM EVERY THREE WEEKS (4 CYCLES PROGRAMMED)

REACTIONS (3)
  - Crohn^s disease [Recovered/Resolved]
  - Immune-mediated thyroiditis [Unknown]
  - Transaminases increased [Unknown]

NARRATIVE: CASE EVENT DATE: 20180101
